FAERS Safety Report 10101556 (Version 2)
Quarter: 2014Q2

REPORT INFORMATION
  Report Type: Report from Study
  Country: US (occurrence: US)
  Receive Date: 20140424
  Receipt Date: 20140509
  Transmission Date: 20141212
  Serious: Yes (Hospitalization)
  Sender: FDA-Public Use
  Company Number: US-JNJFOC-20140409226

PATIENT
  Age: 52 Year
  Sex: Female
  Weight: 94.7 kg

DRUGS (1)
  1. ACETAMINOPHEN [Suspect]
     Indication: PAIN IN EXTREMITY
     Route: 065

REACTIONS (5)
  - Cardiac failure congestive [Recovered/Resolved]
  - Hepatic ischaemia [Recovered/Resolved]
  - Prothrombin time prolonged [Recovered/Resolved]
  - Overdose [Recovered/Resolved]
  - Transaminases increased [Recovered/Resolved]
